FAERS Safety Report 12900258 (Version 1)
Quarter: 2016Q4

REPORT INFORMATION
  Report Type: Spontaneous
  Country: CN (occurrence: CN)
  Receive Date: 20161101
  Receipt Date: 20161101
  Transmission Date: 20170207
  Serious: Yes (Other)
  Sender: FDA-Public Use
  Company Number: CN-NOVOPROD-516199

PATIENT
  Age: 60 Year
  Sex: Male
  Weight: 78 kg

DRUGS (6)
  1. NOVOMIX 30 PENFILL [Suspect]
     Active Substance: INSULIN ASPART
     Indication: DIABETES MELLITUS
     Dosage: 7 U, BID
     Route: 058
     Dates: start: 20160715, end: 20160721
  2. CLOPIDOGREL HYDROGEN SULFATE [Suspect]
     Active Substance: CLOPIDOGREL BISULFATE
     Indication: CARDIAC DISORDER
     Dosage: 75 MG, QD
     Route: 048
     Dates: start: 20160715, end: 20160719
  3. ASPIRIN                            /00002701/ [Suspect]
     Active Substance: ASPIRIN
     Indication: CARDIAC DISORDER
     Dosage: 0.1 G, QD
     Route: 048
     Dates: start: 20160715, end: 20160719
  4. ALPROSTADIL. [Suspect]
     Active Substance: ALPROSTADIL
     Indication: CARDIAC DISORDER
     Dosage: 20 ?G, QD
     Route: 041
     Dates: start: 20160715, end: 20160718
  5. THIOCTIC ACID [Suspect]
     Active Substance: THIOCTIC ACID
     Indication: DIABETES MELLITUS
     Dosage: 0.45 G, QD
     Route: 041
     Dates: start: 20160715, end: 20160718
  6. EPALRESTAT [Suspect]
     Active Substance: EPALRESTAT
     Indication: DIABETES MELLITUS
     Dosage: 50 MG, TID
     Route: 048
     Dates: start: 20160715, end: 20160719

REACTIONS (3)
  - Rash [Not Recovered/Not Resolved]
  - Lip swelling [Not Recovered/Not Resolved]
  - Pharyngeal hypertrophy [Not Recovered/Not Resolved]

NARRATIVE: CASE EVENT DATE: 20160717
